FAERS Safety Report 20278007 (Version 5)
Quarter: 2022Q3

REPORT INFORMATION
  Report Type: Spontaneous
  Country: US (occurrence: US)
  Receive Date: 20220103
  Receipt Date: 20220908
  Transmission Date: 20221026
  Serious: Yes (Life-Threatening, Other)
  Sender: FDA-Public Use
  Company Number: US-GLAXOSMITHKLINE-US2021AMR264900

PATIENT
  Age: 45 Year
  Sex: Female
  Weight: 59.2 kg

DRUGS (4)
  1. ZEJULA [Suspect]
     Active Substance: NIRAPARIB
     Indication: Ovarian cancer
     Dosage: 200 MG, QD
     Dates: start: 20211217
  2. ZEJULA [Suspect]
     Active Substance: NIRAPARIB
     Dosage: 300 MG, QD
  3. ZEJULA [Suspect]
     Active Substance: NIRAPARIB
     Dosage: UNK UNK, Z (300 MG ALTERNATING WITH 200 MG QD)
  4. ZEJULA [Suspect]
     Active Substance: NIRAPARIB
     Dosage: 200 MG, QD

REACTIONS (17)
  - Platelet count decreased [Not Recovered/Not Resolved]
  - Fatigue [Not Recovered/Not Resolved]
  - Myalgia [Not Recovered/Not Resolved]
  - Pain in extremity [Recovered/Resolved]
  - Arthralgia [Not Recovered/Not Resolved]
  - Neck pain [Not Recovered/Not Resolved]
  - Peripheral swelling [Recovered/Resolved]
  - Musculoskeletal stiffness [Recovered/Resolved]
  - Red blood cell count increased [Recovered/Resolved]
  - Pain [Not Recovered/Not Resolved]
  - Bone pain [Recovering/Resolving]
  - Nasopharyngitis [Recovered/Resolved]
  - Nausea [Not Recovered/Not Resolved]
  - Headache [Recovered/Resolved]
  - Migraine [Recovered/Resolved]
  - Haemoglobin decreased [Not Recovered/Not Resolved]
  - Decreased appetite [Not Recovered/Not Resolved]

NARRATIVE: CASE EVENT DATE: 20211201
